FAERS Safety Report 17572171 (Version 1)
Quarter: 2020Q1

REPORT INFORMATION
  Report Type: Spontaneous
  Country: US (occurrence: US)
  Receive Date: 20200323
  Receipt Date: 20200323
  Transmission Date: 20200409
  Serious: Yes (Hospitalization, Other)
  Sender: FDA-Public Use
  Company Number: US-HIKMA PHARMACEUTICALS USA INC.-US-H14001-20-50846

PATIENT
  Age: 75 Year
  Sex: Male

DRUGS (3)
  1. GABAPENTIN. [Suspect]
     Active Substance: GABAPENTIN
     Indication: PRODUCT USED FOR UNKNOWN INDICATION
     Route: 065
  2. CEPHALEXIN. [Concomitant]
     Active Substance: CEPHALEXIN
     Indication: INFECTION PROPHYLAXIS
     Route: 065
  3. MORPHINE [Suspect]
     Active Substance: MORPHINE

REACTIONS (6)
  - Acute kidney injury [Recovering/Resolving]
  - Withdrawal syndrome [Recovered/Resolved]
  - Delirium [Recovered/Resolved]
  - Lethargy [Unknown]
  - Hypotension [Unknown]
  - Toxicity to various agents [Recovering/Resolving]
